FAERS Safety Report 8421918-9 (Version None)
Quarter: 2012Q2

REPORT INFORMATION
  Report Type: 
  Country: None (occurrence: None)
  Receive Date: 20120608
  Receipt Date: 20120530
  Transmission Date: 20120825
  Serious: Yes (Hospitalization)
  Sender: FDA-Public Use
  Company Number: ES-ELI_LILLY_AND_COMPANY-ES201205010489

PATIENT
  Sex: Female
  Weight: 51.8 kg

DRUGS (7)
  1. FORTEO [Suspect]
     Indication: OSTEOPOROSIS
     Dosage: 20 UG, QD
     Route: 058
     Dates: start: 20110709
  2. FORTEO [Suspect]
     Dosage: 20 UG, QD
     Route: 058
  3. HIDROFEROL [Concomitant]
     Indication: OSTEOPOROSIS
     Dosage: 1AMP/20DAYS
  4. LORAZEPAM [Concomitant]
     Dosage: 1 DF, QD
     Route: 048
  5. TRAMADOL HCL [Concomitant]
     Indication: PAIN
     Dosage: 1 DF, QD
     Route: 048
  6. LYRICA [Concomitant]
     Indication: PAIN
     Dosage: 2 DF, BID
     Route: 048
  7. CALCIUM CARBONATE [Concomitant]
     Indication: OSTEOPOROSIS
     Dosage: 1 DF, QD
     Route: 048

REACTIONS (3)
  - BLOOD CALCIUM DECREASED [None]
  - INGUINAL HERNIA [None]
  - BLOOD IRON DECREASED [None]
